FAERS Safety Report 8903986 (Version 1)
Quarter: 2012Q4

REPORT INFORMATION
  Report Type: 
  Country: US (occurrence: US)
  Receive Date: 20121113
  Receipt Date: 20121113
  Transmission Date: 20130627
  Serious: No
  Sender: FDA-Public Use
  Company Number: US-AMGEN-USASP2012009680

PATIENT
  Sex: Female

DRUGS (4)
  1. ENBREL [Suspect]
     Indication: PRODUCT USED FOR UNKNOWN INDICATION
     Dosage: 50 mg, qwk
  2. SIMVASTATIN [Concomitant]
     Dosage: 40 mg, UNK
  3. TETRACYCLINE [Concomitant]
     Dosage: 250 mg, UNK
  4. ASPIRIN [Concomitant]
     Dosage: 81 mg, UNK

REACTIONS (1)
  - Injection site bruising [Unknown]
